FAERS Safety Report 6557795-0 (Version None)
Quarter: 2010Q1

REPORT INFORMATION
  Report Type: 
  Country: None (occurrence: None)
  Receive Date: 20100129
  Receipt Date: 20100118
  Transmission Date: 20100710
  Serious: Yes (Hospitalization)
  Sender: FDA-Public Use
  Company Number: PHHY2009MX46401

PATIENT
  Age: 72 Year
  Sex: Female

DRUGS (1)
  1. DIOVAN HCT [Suspect]
     Indication: HYPERTENSION
     Dosage: 160/12.5MG 1 TABLET PER DAY
     Dates: start: 20050701, end: 20090912

REACTIONS (6)
  - ANAEMIA [None]
  - DISCOMFORT [None]
  - HYPOTENSION [None]
  - KIDNEY INFECTION [None]
  - OEDEMA PERIPHERAL [None]
  - RENAL FAILURE CHRONIC [None]
